FAERS Safety Report 7213831-X (Version None)
Quarter: 2011Q1

REPORT INFORMATION
  Report Type: 
  Country: None (occurrence: None)
  Receive Date: 20110106
  Receipt Date: 20101227
  Transmission Date: 20110831
  Serious: Yes (Hospitalization)
  Sender: FDA-Public Use
  Company Number: PHHO2010US19681

PATIENT
  Sex: Female
  Weight: 58.6 kg

DRUGS (4)
  1. AFINITOR [Suspect]
     Indication: GLIOBLASTOMA
     Dosage: 70 MG WEEKLY
     Route: 048
     Dates: start: 20101208, end: 20101215
  2. TEMOZOLOMIDE [Suspect]
     Indication: GLIOBLASTOMA
     Dosage: UNK
     Dates: end: 20101217
  3. TEMOZOLOMIDE [Suspect]
     Dosage: UNK
     Dates: start: 20101221, end: 20101221
  4. RADIATION [Suspect]
     Indication: GLIOBLASTOMA

REACTIONS (5)
  - FATIGUE [None]
  - HYPOTENSION [None]
  - ASTHENIA [None]
  - MALAISE [None]
  - SYNCOPE [None]
